FAERS Safety Report 5994063-X (Version None)
Quarter: 2008Q4

REPORT INFORMATION
  Report Type: 
  Country: None (occurrence: None)
  Receive Date: 20081212
  Receipt Date: 20080918
  Transmission Date: 20090506
  Serious: Yes (Other)
  Sender: FDA-Public Use
  Company Number: US-ABBOTT-08P-163-0473351-00

PATIENT
  Sex: Female
  Weight: 72.64 kg

DRUGS (5)
  1. HUMIRA [Suspect]
     Indication: PSORIASIS
     Dosage: 40 MG Q 3-4 WK (NOT AS DIRECTED)
     Route: 058
     Dates: start: 20080201, end: 20080701
  2. HUMIRA [Suspect]
     Indication: PSORIATIC ARTHROPATHY
  3. TYLENOL (CAPLET) [Concomitant]
     Indication: DRUG USE FOR UNKNOWN INDICATION
  4. ALUMINIUM CHLORIDE [Concomitant]
     Indication: DRUG USE FOR UNKNOWN INDICATION
  5. OTHOCYLIN [Concomitant]
     Indication: CONTRACEPTION

REACTIONS (8)
  - ASTHENIA [None]
  - BLOOD CHOLESTEROL INCREASED [None]
  - BLOOD TRIGLYCERIDES INCREASED [None]
  - DRUG DOSE OMISSION [None]
  - HEADACHE [None]
  - MALAISE [None]
  - TUBERCULIN TEST POSITIVE [None]
  - URTICARIA [None]
